FAERS Safety Report 4975695-4 (Version None)
Quarter: 2006Q2

REPORT INFORMATION
  Report Type: 
  Country: None (occurrence: None)
  Receive Date: 20060411
  Receipt Date: 20060329
  Transmission Date: 20061013
  Serious: Yes (Other)
  Sender: FDA-Public Use
  Company Number: HQWYE596231MAR06

PATIENT
  Age: 38 Year
  Sex: Female

DRUGS (1)
  1. EFFEXOR XR [Suspect]

REACTIONS (1)
  - SELF-INJURIOUS IDEATION [None]
